FAERS Safety Report 9119870 (Version 1)
Quarter: 2013Q1

REPORT INFORMATION
  Report Type: Spontaneous
  Country: TR (occurrence: None)
  Receive Date: 20130130
  Receipt Date: 20130130
  Transmission Date: 20140127
  Serious: Yes (Hospitalization)
  Sender: FDA-Public Use
  Company Number: VAL_01282_2013

PATIENT
  Age: 8 Year
  Sex: Female

DRUGS (7)
  1. CARBAMAZEPINE (CARBAMAZEPINE) CHEWABLE TABLET [Suspect]
     Indication: EPILEPSY
     Dosage: (DF)?(5 WEEKS UNTIL NOT CONTINUING)
  2. AMOXIC.AC.CLAVUL. [Concomitant]
  3. PARACETAMOL [Concomitant]
  4. HYDROXYZINE [Concomitant]
  5. VANCOMYCIN [Concomitant]
  6. AMIKACIN [Concomitant]
  7. AMPICILINA+SULBACTAM [Concomitant]

REACTIONS (4)
  - Drug reaction with eosinophilia and systemic symptoms [None]
  - Acanthosis [None]
  - Parakeratosis [None]
  - Eczema [None]
